FAERS Safety Report 6704309-8 (Version None)
Quarter: 2010Q2

REPORT INFORMATION
  Report Type: 
  Country: None (occurrence: None)
  Receive Date: 20100430
  Receipt Date: 20100330
  Transmission Date: 20101027
  Serious: No
  Sender: FDA-Public Use
  Company Number: US-BAYER-201013806BCC

PATIENT
  Age: 69 Year
  Sex: Female
  Weight: 68 kg

DRUGS (8)
  1. ALEVE [Suspect]
     Indication: MENISCUS LESION
     Dosage: TOTAL DAILY DOSE: 220 MG  UNIT DOSE: 220 MG
     Route: 048
     Dates: start: 20100320, end: 20100323
  2. ALEVE [Suspect]
     Dosage: TOTAL DAILY DOSE: 220 MG  UNIT DOSE: 220 MG
     Route: 048
     Dates: start: 20100329, end: 20100330
  3. LISINOPRIL [Concomitant]
  4. HYDROCHLOROTHIAZIDE [Concomitant]
  5. METOPROLOL [Concomitant]
  6. CALCIUM PLUS D [Concomitant]
  7. MULTIVITAMIN [Concomitant]
  8. ASPIRIN [Concomitant]

REACTIONS (2)
  - INFLUENZA LIKE ILLNESS [None]
  - RASH PRURITIC [None]
